FAERS Safety Report 10440218 (Version 2)
Quarter: 2014Q3

REPORT INFORMATION
  Report Type: Spontaneous
  Country: US (occurrence: US)
  Receive Date: 20140908
  Receipt Date: 20140908
  Transmission Date: 20150326
  Serious: Yes (Hospitalization)
  Sender: FDA-Public Use
  Company Number: US-BRISTOL-MYERS SQUIBB COMPANY-20119905

PATIENT
  Age: 44 Year
  Sex: Male
  Weight: 81.63 kg

DRUGS (9)
  1. ABILIFY [Suspect]
     Active Substance: ARIPIPRAZOLE
  2. DEPAKOTE [Concomitant]
     Active Substance: DIVALPROEX SODIUM
  3. ILOPERIDONE [Concomitant]
     Active Substance: ILOPERIDONE
  4. PROLIXIN D [Concomitant]
     Dates: start: 20130718
  5. ABILIFY MAINTENA [Suspect]
     Active Substance: ARIPIPRAZOLE
     Indication: SCHIZOAFFECTIVE DISORDER
     Dosage: 06NOV13
     Route: 030
     Dates: start: 20131009
  6. COGENTIN [Concomitant]
     Active Substance: BENZTROPINE MESYLATE
  7. PROLIXIN [Concomitant]
     Active Substance: FLUPHENAZINE HYDROCHLORIDE
  8. KLONOPIN [Concomitant]
     Active Substance: CLONAZEPAM
  9. ZYPREXA ZYDIS [Concomitant]
     Active Substance: OLANZAPINE

REACTIONS (7)
  - Anxiety [Unknown]
  - Schizoaffective disorder [Unknown]
  - Speech disorder [Not Recovered/Not Resolved]
  - Off label use [Unknown]
  - Hypomania [Unknown]
  - Drug hypersensitivity [Unknown]
  - Mania [Not Recovered/Not Resolved]

NARRATIVE: CASE EVENT DATE: 20131009
